FAERS Safety Report 9908695 (Version 1)
Quarter: 2014Q1

REPORT INFORMATION
  Report Type: Spontaneous
  Country: US (occurrence: None)
  Receive Date: 20140211
  Receipt Date: 20140211
  Transmission Date: 20141002
  Serious: Yes (Death)
  Sender: FDA-Public Use
  Company Number: AUR-APL-2014-01031

PATIENT
  Age: 41 Year
  Sex: Male

DRUGS (5)
  1. TOPIRAMATE (TOPIRAMATE) [Suspect]
     Indication: PRODUCT USED FOR UNKNOWN INDICATION
  2. HEROIN (DIAMORPHINE) (DIAMORPHINE) [Suspect]
     Indication: PRODUCT USED FOR UNKNOWN INDICATION
  3. COCAINE (COCAINE) [Suspect]
     Indication: PRODUCT USED FOR UNKNOWN INDICATION
  4. DILTIAZEM (DILTIAZEM) (DILTIAZEM) [Suspect]
     Indication: PRODUCT USED FOR UNKNOWN INDICATION
  5. QUININE [Suspect]
     Indication: PRODUCT USED FOR UNKNOWN INDICATION

REACTIONS (2)
  - Drug abuse [None]
  - Toxicity to various agents [None]
